FAERS Safety Report 9133132 (Version 1)
Quarter: 2013Q1

REPORT INFORMATION
  Report Type: Spontaneous
  Country: FR (occurrence: FR)
  Receive Date: 20130301
  Receipt Date: 20130301
  Transmission Date: 20140127
  Serious: Yes (Other)
  Sender: FDA-Public Use
  Company Number: FR-ASTRAZENECA-2013SE11676

PATIENT
  Age: 0 Week
  Sex: 0
  Weight: 2.4 kg

DRUGS (1)
  1. ATENOLOL [Suspect]
     Indication: CARDIOVASCULAR EVENT PROPHYLAXIS
     Route: 064

REACTIONS (2)
  - Foetal heart rate abnormal [Unknown]
  - Premature baby [Unknown]
